FAERS Safety Report 13627081 (Version 2)
Quarter: 2017Q3

REPORT INFORMATION
  Report Type: Spontaneous
  Country: US (occurrence: US)
  Receive Date: 20170607
  Receipt Date: 20170828
  Transmission Date: 20171127
  Serious: Yes (Other)
  Sender: FDA-Public Use
  Company Number: US-PFIZER INC-2017244204

PATIENT
  Age: 51 Year
  Sex: Male
  Weight: 61.23 kg

DRUGS (8)
  1. OMEPRAZOLE. [Concomitant]
     Active Substance: OMEPRAZOLE
     Indication: GASTROOESOPHAGEAL REFLUX DISEASE
     Dosage: 40 MG, DAILY
     Dates: start: 201704
  2. CARAFATE [Concomitant]
     Active Substance: SUCRALFATE
     Dosage: 1 G, 4X/DAY
     Dates: start: 201704
  3. VFEND [Suspect]
     Active Substance: VORICONAZOLE
     Indication: COCCIDIOIDOMYCOSIS
     Dosage: 200 MG, 2X/DAY
     Route: 048
     Dates: start: 20170101, end: 20170419
  4. CARVEDILOL. [Concomitant]
     Active Substance: CARVEDILOL
     Indication: CARDIAC DISORDER
     Dosage: 6.25 MG, 2X/DAY
  5. OMEPRAZOLE. [Concomitant]
     Active Substance: OMEPRAZOLE
     Indication: OROPHARYNGEAL PAIN
  6. BACTRIM [Suspect]
     Active Substance: SULFAMETHOXAZOLE\TRIMETHOPRIM
     Indication: NOCARDIOSIS
     Dosage: 1 DF, 3X/DAY (1 TB DS TID)
     Dates: start: 201703, end: 20170419
  7. MOXIFLOX [Suspect]
     Active Substance: MOXIFLOXACIN
     Indication: NOCARDIOSIS
     Dosage: UNK UNK, 1X/DAY (400 PO QD)
     Route: 048
     Dates: start: 20170310, end: 20170419
  8. OMEPRAZOLE. [Concomitant]
     Active Substance: OMEPRAZOLE
     Indication: VOCAL CORD DISORDER

REACTIONS (3)
  - Product use in unapproved indication [Unknown]
  - Rash [Recovered/Resolved]
  - Pseudoporphyria [Recovering/Resolving]

NARRATIVE: CASE EVENT DATE: 201701
